FAERS Safety Report 13679453 (Version 1)
Quarter: 2017Q2

REPORT INFORMATION
  Report Type: Spontaneous
  Country: US (occurrence: US)
  Receive Date: 20170622
  Receipt Date: 20170622
  Transmission Date: 20170830
  Serious: Yes (Death)
  Sender: FDA-Public Use
  Company Number: US-CELGENEUS-USA-20170605763

PATIENT
  Age: 61 Year
  Sex: Female

DRUGS (3)
  1. PEMBROLIZUMAB (MK-3475) [Suspect]
     Active Substance: PEMBROLIZUMAB
     Indication: ADENOCARCINOMA PANCREAS
     Route: 065
  2. GEMCITABINE [Suspect]
     Active Substance: GEMCITABINE\GEMCITABINE HYDROCHLORIDE
     Indication: ADENOCARCINOMA PANCREAS
     Dosage: 1000 MILLIGRAM/SQ. METER
     Route: 065
  3. ABRAXANE [Suspect]
     Active Substance: PACLITAXEL
     Indication: ADENOCARCINOMA PANCREAS
     Dosage: 125 MILLIGRAM/SQ. METER
     Route: 041

REACTIONS (7)
  - Thrombocytopenia [Unknown]
  - Diarrhoea [Unknown]
  - Pain in extremity [Unknown]
  - Peripheral sensory neuropathy [Unknown]
  - Insomnia [Unknown]
  - Death [Fatal]
  - Anaemia [Unknown]
